FAERS Safety Report 5624832-7 (Version None)
Quarter: 2008Q1

REPORT INFORMATION
  Report Type: 
  Country: None (occurrence: None)
  Receive Date: 20080213
  Receipt Date: 20080207
  Transmission Date: 20080703
  Serious: Yes (Death)
  Sender: FDA-Public Use
  Company Number: AU-AVENTIS-200810699EU

PATIENT
  Age: 74 Year
  Sex: Male

DRUGS (1)
  1. RILUTEK [Suspect]
     Route: 048
     Dates: start: 20061220

REACTIONS (1)
  - PNEUMONIA [None]
